FAERS Safety Report 6609401-4 (Version None)
Quarter: 2010Q1

REPORT INFORMATION
  Report Type: 
  Country: None (occurrence: None)
  Receive Date: 20100224
  Receipt Date: 20100212
  Transmission Date: 20100710
  Serious: Yes (Other)
  Sender: FDA-Public Use
  Company Number: JHP201000059

PATIENT
  Age: 78 Year
  Sex: Female

DRUGS (1)
  1. DANTRIUM (DANTROLENE SODIUM) IV (FOR INJECTION) [Suspect]
     Indication: NEUROLEPTIC MALIGNANT SYNDROME
     Dosage: 40 MG, DAILY, INTRAVENOUS
     Route: 042

REACTIONS (1)
  - RESPIRATORY FAILURE [None]
